FAERS Safety Report 13913375 (Version 1)
Quarter: 2017Q3

REPORT INFORMATION
  Report Type: Spontaneous
  Country: US (occurrence: US)
  Receive Date: 20170828
  Receipt Date: 20170828
  Transmission Date: 20171127
  Serious: No
  Sender: FDA-Public Use
  Company Number: US-ROCHE-1132705

PATIENT
  Sex: Female

DRUGS (2)
  1. NUTROPIN [Suspect]
     Active Substance: SOMATROPIN
     Indication: DWARFISM
     Dosage: 4 UNIT EVERY DAY
     Route: 065
  2. ESTRADIOL. [Concomitant]
     Active Substance: ESTRADIOL

REACTIONS (7)
  - Libido decreased [Unknown]
  - Drug ineffective [Unknown]
  - Fatigue [Unknown]
  - Hirsutism [Unknown]
  - Impatience [Unknown]
  - Depression [Unknown]
  - Obesity [Unknown]
